FAERS Safety Report 23245865 (Version 1)
Quarter: 2023Q4

REPORT INFORMATION
  Report Type: Report from Study
  Country: US (occurrence: US)
  Receive Date: 20231130
  Receipt Date: 20231130
  Transmission Date: 20240110
  Serious: Yes (Other)
  Sender: FDA-Public Use
  Company Number: US-MYLANLABS-2022M1047536

PATIENT
  Sex: Female
  Weight: 53.07 kg

DRUGS (1)
  1. GLATIRAMER ACETATE [Suspect]
     Active Substance: GLATIRAMER ACETATE
     Indication: Multiple sclerosis
     Dosage: 40 MILLIGRAM, 3XW
     Route: 058

REACTIONS (9)
  - Macular degeneration [Unknown]
  - Muscular weakness [Unknown]
  - Visual impairment [Unknown]
  - Sneezing [Unknown]
  - Muscle tightness [Unknown]
  - Memory impairment [Unknown]
  - Productive cough [Unknown]
  - Peripheral swelling [Unknown]
  - Product dose omission issue [Unknown]
